FAERS Safety Report 9062928 (Version 2)
Quarter: 2013Q1

REPORT INFORMATION
  Report Type: Report from Study
  Country: US (occurrence: US)
  Receive Date: 20130131
  Receipt Date: 20130311
  Transmission Date: 20140127
  Serious: Yes (Hospitalization, Other)
  Sender: FDA-Public Use
  Company Number: US-ABBOTT-12P-163-0995302-00

PATIENT
  Age: 70 Year
  Sex: Male

DRUGS (6)
  1. HUMIRA [Suspect]
     Indication: RHEUMATOID ARTHRITIS
  2. METHOTREXATE [Concomitant]
     Indication: PRODUCT USED FOR UNKNOWN INDICATION
     Dosage: 6 TABLETS WEEKLY
  3. FOLIC ACID [Concomitant]
     Indication: PRODUCT USED FOR UNKNOWN INDICATION
     Dosage: 1 TABLET DAILY
  4. PREDNISONE [Concomitant]
     Indication: PRODUCT USED FOR UNKNOWN INDICATION
     Dosage: 0.5 TABLET DAILY
  5. BENICAR [Concomitant]
     Indication: HYPERTENSION
     Dosage: 40 MG DAILY
  6. LOVASTATIN [Concomitant]
     Indication: BLOOD CHOLESTEROL INCREASED
     Dosage: 20 MG AT NIGHT

REACTIONS (11)
  - Impaired healing [Recovered/Resolved]
  - Arthralgia [Recovered/Resolved]
  - Wound infection staphylococcal [Recovered/Resolved]
  - Hypertension [Recovered/Resolved]
  - Tendon disorder [Unknown]
  - Blood cholesterol increased [Unknown]
  - Incorrect dose administered [Unknown]
  - Injection site extravasation [Unknown]
  - Injection site haemorrhage [Unknown]
  - Joint swelling [Not Recovered/Not Resolved]
  - Tendon pain [Not Recovered/Not Resolved]
